FAERS Safety Report 8307812-2 (Version None)
Quarter: 2012Q2

REPORT INFORMATION
  Report Type: 
  Country: None (occurrence: None)
  Receive Date: 20120424
  Receipt Date: 20110808
  Transmission Date: 20120825
  Serious: Yes (Other)
  Sender: FDA-Public Use
  Company Number: US-TEVA-2008001294

PATIENT
  Sex: Male
  Weight: 64.468 kg

DRUGS (15)
  1. BRIMONIDINE TARTRATE [Concomitant]
  2. LOVASTATIN [Concomitant]
     Dates: start: 19950101
  3. FINASTERIDE [Concomitant]
     Dates: start: 20050101
  4. FLOMAX [Concomitant]
     Dates: start: 20050101
  5. LEVOBUNOLOL HCL [Concomitant]
  6. PROVIGIL [Suspect]
     Indication: SLEEP APNOEA SYNDROME
     Dosage: 200 MILLIGRAM;
     Route: 048
     Dates: start: 20050101, end: 20081117
  7. BUPROPION HCL [Concomitant]
     Dates: start: 20080601
  8. PILOCARPINE [Concomitant]
     Dates: start: 20081101
  9. IRON [Concomitant]
  10. CARVEDILOL [Concomitant]
     Dates: start: 20050101
  11. K-TAB [Concomitant]
     Dates: start: 20050101
  12. LEVOTHYROXINE SODIUM [Concomitant]
     Dates: start: 19880101
  13. FUROSEMIDE [Concomitant]
  14. COZAAR [Concomitant]
     Dates: start: 20050101
  15. MULTI-VITAMIN [Concomitant]

REACTIONS (2)
  - DRUG INEFFECTIVE [None]
  - SUICIDAL IDEATION [None]
